FAERS Safety Report 10161227 (Version 1)
Quarter: 2014Q2

REPORT INFORMATION
  Report Type: Spontaneous
  Country: NL (occurrence: NL)
  Receive Date: 20140508
  Receipt Date: 20140508
  Transmission Date: 20141212
  Serious: Yes (Hospitalization)
  Sender: FDA-Public Use
  Company Number: PHHY2014NL055503

PATIENT
  Sex: Male

DRUGS (7)
  1. CLOZAPINE [Suspect]
     Indication: PSYCHOTIC DISORDER
     Dosage: 100 MG, (2DD1)
     Dates: start: 20140407, end: 20140421
  2. LORAZEPAM [Concomitant]
     Dosage: 1 MG (4DD1 AS NEEDED)
  3. LORAZEPAM [Concomitant]
     Dosage: 2.5 MG (1DD1)
  4. HALOPERIDOL [Concomitant]
     Dosage: 1 MG (1DD2)
  5. TEMAZEPAM [Concomitant]
     Dosage: 20 MG 1DD1
  6. LORMETAZEPAM [Concomitant]
     Dosage: 2 MG, 1DD1
  7. AKINETON [Concomitant]
     Dosage: 2 MG, 3DD1

REACTIONS (2)
  - Pericarditis [Recovering/Resolving]
  - Myocarditis [Recovering/Resolving]
